FAERS Safety Report 4700120-8 (Version None)
Quarter: 2005Q2

REPORT INFORMATION
  Report Type: 
  Country: None (occurrence: None)
  Receive Date: 20050207
  Receipt Date: 20050207
  Transmission Date: 20051028
  Serious: Yes (Other)
  Sender: FDA-Public Use
  Company Number: None

PATIENT

DRUGS (6)
  1. NORTRIPTYLINE HCL [Suspect]
     Indication: BIPOLAR I DISORDER
     Dates: start: 19940101
  2. NORTRIPTYLINE HCL [Suspect]
     Indication: DEPRESSION
     Dates: start: 19940101
  3. NORTRIPTYLINE HCL [Suspect]
     Indication: BIPOLAR I DISORDER
     Dates: start: 19960101
  4. NORTRIPTYLINE HCL [Suspect]
     Indication: DEPRESSION
     Dates: start: 19960101
  5. NORTRIPTYLINE HCL [Suspect]
     Indication: BIPOLAR I DISORDER
     Dates: start: 19980101
  6. NORTRIPTYLINE HCL [Suspect]
     Indication: DEPRESSION
     Dates: start: 19980101

REACTIONS (2)
  - DEPRESSION [None]
  - THERAPEUTIC RESPONSE UNEXPECTED WITH DRUG SUBSTITUTION [None]
